FAERS Safety Report 7464017-5 (Version None)
Quarter: 2011Q2

REPORT INFORMATION
  Report Type: 
  Country: None (occurrence: None)
  Receive Date: 20110506
  Receipt Date: 20110421
  Transmission Date: 20111010
  Serious: No
  Sender: FDA-Public Use
  Company Number: US-B.I. PHARMACEUTICALS,INC./RIDGEFIELD-2011-BP-06082BP

PATIENT
  Sex: Female

DRUGS (10)
  1. POTASSIUM [Concomitant]
  2. PRADAXA [Suspect]
     Indication: CEREBROVASCULAR ACCIDENT PROPHYLAXIS
     Dosage: 150 MG
     Route: 048
  3. CARDIZEM [Concomitant]
  4. CO Q10 [Concomitant]
  5. AMIODARONE HCL [Concomitant]
  6. FUROSEMIDE [Concomitant]
  7. ASPIRIN [Concomitant]
  8. SIMVASTATIN [Concomitant]
  9. MULTI-VITAMIN [Concomitant]
  10. PROBIOTICS [Concomitant]

REACTIONS (1)
  - FOREIGN BODY [None]
